FAERS Safety Report 4534941-1 (Version None)
Quarter: 2004Q4

REPORT INFORMATION
  Report Type: 
  Country: None (occurrence: None)
  Receive Date: 20041222
  Receipt Date: 20040827
  Transmission Date: 20050328
  Serious: No
  Sender: FDA-Public Use
  Company Number: US-BRISTOL-MYERS SQUIBB COMPANY-12686408

PATIENT
  Age: 60 Year
  Sex: Female
  Weight: 79 kg

DRUGS (9)
  1. PRAVACHOL [Suspect]
     Indication: BLOOD CHOLESTEROL INCREASED
     Route: 048
     Dates: end: 20040820
  2. FOSAMAX [Concomitant]
  3. ASACOL [Concomitant]
  4. LEXAPRO [Concomitant]
  5. VITAMIN C AND E [Concomitant]
  6. OS-CAL + D [Concomitant]
  7. MULTI-VITAMIN [Concomitant]
  8. GLUCOSAMINE [Concomitant]
  9. BLACK COHOSH [Concomitant]

REACTIONS (1)
  - FATIGUE [None]
